FAERS Safety Report 7293034-3 (Version None)
Quarter: 2011Q1

REPORT INFORMATION
  Report Type: 
  Country: None (occurrence: None)
  Receive Date: 20110215
  Receipt Date: 20110210
  Transmission Date: 20110831
  Serious: No
  Sender: FDA-Public Use
  Company Number: US-PFIZER INC-US-WYE-H14527310

PATIENT

DRUGS (2)
  1. PRISTIQ [Suspect]
     Dosage: 100 MG, 1X/DAY
     Route: 065
  2. CLOZAPINE [Suspect]
     Dosage: 0.5 MG

REACTIONS (1)
  - NYSTAGMUS [None]
